FAERS Safety Report 5967946-4 (Version None)
Quarter: 2008Q4

REPORT INFORMATION
  Report Type: 
  Country: None (occurrence: None)
  Receive Date: 20081126
  Receipt Date: 20081121
  Transmission Date: 20090506
  Serious: Yes (Other)
  Sender: FDA-Public Use
  Company Number: US-ASTRAZENECA-2008UW26163

PATIENT
  Age: 62 Year
  Sex: Female

DRUGS (3)
  1. NEXIUM [Suspect]
     Indication: GASTROOESOPHAGEAL REFLUX DISEASE
     Dosage: 40 MG
     Route: 048
     Dates: start: 20030101
  2. ATENOLOL [Concomitant]
     Route: 048
  3. BONIVA [Concomitant]

REACTIONS (4)
  - CARDIAC ABLATION [None]
  - DYSPEPSIA [None]
  - TACHYCARDIA [None]
  - THROAT IRRITATION [None]
